FAERS Safety Report 24297143 (Version 1)
Quarter: 2024Q3

REPORT INFORMATION
  Report Type: Spontaneous
  Country: US (occurrence: US)
  Receive Date: 20240909
  Receipt Date: 20240909
  Transmission Date: 20241016
  Serious: No
  Sender: ROCHE
  Company Number: US-ROCHE-3573293

PATIENT
  Age: 87 Year
  Sex: Female

DRUGS (2)
  1. ACTEMRA [Suspect]
     Active Substance: TOCILIZUMAB
     Indication: Giant cell arteritis
     Route: 058
  2. ACTEMRA [Suspect]
     Active Substance: TOCILIZUMAB
     Indication: Polymyalgia rheumatica
     Route: 058

REACTIONS (2)
  - No adverse event [Unknown]
  - Off label use [Unknown]
